FAERS Safety Report 9803567 (Version 1)
Quarter: 2014Q1

REPORT INFORMATION
  Report Type: Spontaneous
  Country: US (occurrence: US)
  Receive Date: 20140108
  Receipt Date: 20140108
  Transmission Date: 20141002
  Serious: No
  Sender: FDA-Public Use
  Company Number: US-GLAXOSMITHKLINE-A1008375A

PATIENT
  Age: 55 Year
  Sex: Female

DRUGS (7)
  1. LOVAZA [Suspect]
     Indication: BLOOD TRIGLYCERIDES
     Dosage: 2CAP PER DAY
     Route: 048
  2. FISH OIL [Suspect]
     Indication: PRODUCT USED FOR UNKNOWN INDICATION
  3. PRAVASTATIN [Concomitant]
  4. ALTACE [Concomitant]
  5. NOVOLOG [Concomitant]
  6. VENTOLIN [Concomitant]
  7. XALATAN [Concomitant]

REACTIONS (5)
  - Dyspepsia [Unknown]
  - Flatulence [Unknown]
  - Micturition urgency [Unknown]
  - Eructation [Unknown]
  - Dysgeusia [Unknown]
